FAERS Safety Report 4953825-8 (Version None)
Quarter: 2006Q1

REPORT INFORMATION
  Report Type: 
  Country: None (occurrence: None)
  Receive Date: 20060324
  Receipt Date: 20060324
  Transmission Date: 20060701
  Serious: Yes (Life-Threatening, Hospitalization)
  Sender: FDA-Public Use
  Company Number: None

PATIENT
  Age: 50 Year
  Sex: Male
  Weight: 85.3 kg

DRUGS (2)
  1. VENLAFAXINE HCL [Suspect]
  2. MIRTAZAPINE [Suspect]

REACTIONS (3)
  - ANXIETY [None]
  - MUSCLE RIGIDITY [None]
  - SEROTONIN SYNDROME [None]
